FAERS Safety Report 14838835 (Version 1)
Quarter: 2018Q2

REPORT INFORMATION
  Report Type: Report from Study
  Country: DE (occurrence: DE)
  Receive Date: 20180502
  Receipt Date: 20180502
  Transmission Date: 20180711
  Serious: Yes (Hospitalization)
  Sender: FDA-Public Use
  Company Number: PHHY2018DE074104

PATIENT
  Age: 2 Year
  Sex: Female
  Weight: 8.96 kg

DRUGS (2)
  1. OMNITROPE [Suspect]
     Active Substance: SOMATROPIN
     Dosage: 0.35 MG, QD (5 MG/1.5 ML )
     Route: 058
  2. OMNITROPE [Suspect]
     Active Substance: SOMATROPIN
     Indication: PRADER-WILLI SYNDROME
     Dosage: 0.30 MG, QD (5 MG/1.5 ML )
     Route: 058
     Dates: start: 201306

REACTIONS (12)
  - Snoring [Recovered/Resolved]
  - Apnoea [Recovered/Resolved]
  - Hypoacusis [Recovered/Resolved]
  - Hypoxia [Recovered/Resolved]
  - Sleep apnoea syndrome [Recovered/Resolved]
  - Hypoxia [Recovered/Resolved]
  - Sleep apnoea syndrome [Recovered/Resolved]
  - Sleep apnoea syndrome [Recovered/Resolved]
  - Hypoxia [Recovered/Resolved]
  - Apnoea [Recovered/Resolved]
  - Adenoidal hypertrophy [Recovered/Resolved]
  - Eustachian tube disorder [Recovered/Resolved]

NARRATIVE: CASE EVENT DATE: 201402
